FAERS Safety Report 14858286 (Version 2)
Quarter: 2018Q2

REPORT INFORMATION
  Report Type: Spontaneous
  Country: US (occurrence: US)
  Receive Date: 20180508
  Receipt Date: 20180510
  Transmission Date: 20180711
  Serious: No
  Sender: FDA-Public Use
  Company Number: US-ASTRAZENECA-2018SE46392

PATIENT
  Sex: Female

DRUGS (1)
  1. TUDORZA PRESSAIR [Suspect]
     Active Substance: ACLIDINIUM BROMIDE
     Route: 055

REACTIONS (5)
  - Diabetes mellitus [Unknown]
  - Thyroid disorder [Unknown]
  - Device issue [Unknown]
  - Respiratory disorder [Unknown]
  - Intentional product misuse [Unknown]
